FAERS Safety Report 7671713-3 (Version None)
Quarter: 2011Q3

REPORT INFORMATION
  Report Type: 
  Country: None (occurrence: None)
  Receive Date: 20110809
  Receipt Date: 20110808
  Transmission Date: 20111222
  Serious: Yes (Death, Hospitalization, Other)
  Sender: FDA-Public Use
  Company Number: US-ABBOTT-11P-163-0844606-00

PATIENT
  Sex: Female
  Weight: 43.584 kg

DRUGS (4)
  1. HUMIRA [Suspect]
     Indication: CROHN'S DISEASE
     Dates: start: 20060101
  2. UNKNOWN ANTIHYPERTENSIVE [Concomitant]
     Indication: HYPERTENSION
     Dates: end: 20110101
  3. UNKNOWN CHOLESTEROL MEDICATION [Concomitant]
     Indication: HYPERLIPIDAEMIA
     Dates: end: 20110101
  4. ASPIRIN [Concomitant]
     Indication: PRODUCT USED FOR UNKNOWN INDICATION
     Dates: end: 20110101

REACTIONS (6)
  - MYOCARDIAL INFARCTION [None]
  - CEREBROVASCULAR ACCIDENT [None]
  - DYSPHAGIA [None]
  - PNEUMONIA ASPIRATION [None]
  - HEMIPARESIS [None]
  - APHASIA [None]
